FAERS Safety Report 21037928 (Version 1)
Quarter: 2022Q3

REPORT INFORMATION
  Report Type: Spontaneous
  Country: IT (occurrence: IT)
  Receive Date: 20220704
  Receipt Date: 20220704
  Transmission Date: 20221026
  Serious: Yes (Death, Other)
  Sender: FDA-Public Use
  Company Number: IT-AMGEN-ITASP2022109495

PATIENT

DRUGS (7)
  1. BEVACIZUMAB [Suspect]
     Active Substance: BEVACIZUMAB
     Indication: Brain neoplasm
     Dosage: UNK
     Route: 065
  2. EVEROLIMUS [Concomitant]
     Active Substance: EVEROLIMUS
  3. TEMOZOLOMIDE [Concomitant]
     Active Substance: TEMOZOLOMIDE
  4. REGORAFENIB [Concomitant]
     Active Substance: REGORAFENIB
  5. CARBOPLATIN [Concomitant]
     Active Substance: CARBOPLATIN
  6. CHLORPROMAZINE [Concomitant]
     Active Substance: CHLORPROMAZINE
  7. COVID-19 vaccine [Concomitant]

REACTIONS (9)
  - Brain neoplasm [Fatal]
  - COVID-19 pneumonia [Fatal]
  - Off label use [Unknown]
  - Bronchitis [Recovered/Resolved]
  - COVID-19 [Recovered/Resolved]
  - Urticaria [Recovered/Resolved]
  - Injection site pain [Recovered/Resolved]
  - Fatigue [Recovered/Resolved]
  - Pyrexia [Recovered/Resolved]
